FAERS Safety Report 17280142 (Version 1)
Quarter: 2020Q1

REPORT INFORMATION
  Report Type: Spontaneous
  Country: US (occurrence: US)
  Receive Date: 20200117
  Receipt Date: 20200117
  Transmission Date: 20200409
  Serious: No
  Sender: FDA-Public Use
  Company Number: US-JNJFOC-20191247699

PATIENT
  Sex: Female
  Weight: 61.29 kg

DRUGS (1)
  1. TYLENOL 8HR [Suspect]
     Active Substance: ACETAMINOPHEN
     Indication: BACK PAIN
     Dosage: 2 CAPLETS, ONCE OR TWICE DAILY
     Route: 048

REACTIONS (1)
  - Inappropriate schedule of product administration [Unknown]
